FAERS Safety Report 13229387 (Version 1)
Quarter: 2017Q1

REPORT INFORMATION
  Report Type: Spontaneous
  Country: US (occurrence: US)
  Receive Date: 20170213
  Receipt Date: 20170213
  Transmission Date: 20170428
  Serious: No
  Sender: FDA-Public Use
  Company Number: None

PATIENT
  Age: 28 Year
  Sex: Male
  Weight: 90 kg

DRUGS (4)
  1. DOXYCYCLINE. [Suspect]
     Active Substance: DOXYCYCLINE
     Indication: PHARYNGITIS
     Dosage: ?          QUANTITY:1 TABLET(S);?
     Route: 048
     Dates: start: 20170201, end: 20170211
  2. SINGULAIR [Concomitant]
     Active Substance: MONTELUKAST SODIUM
  3. DOXYCYCLINE. [Suspect]
     Active Substance: DOXYCYCLINE
     Indication: LOWER RESPIRATORY TRACT INFECTION
     Dosage: ?          QUANTITY:1 TABLET(S);?
     Route: 048
     Dates: start: 20170201, end: 20170211
  4. PEPCID AC [Concomitant]
     Active Substance: FAMOTIDINE

REACTIONS (6)
  - Eyelid oedema [None]
  - Loss of consciousness [None]
  - Haemorrhage [None]
  - Skin abrasion [None]
  - Lip swelling [None]
  - Face injury [None]

NARRATIVE: CASE EVENT DATE: 20170211
